FAERS Safety Report 16288439 (Version 3)
Quarter: 2019Q2

REPORT INFORMATION
  Report Type: Report from Study
  Country: None (occurrence: US)
  Receive Date: 20190509
  Receipt Date: 20190625
  Transmission Date: 20190711
  Serious: Yes (Hospitalization, Other)
  Sender: FDA-Public Use
  Company Number: US-ABBVIE-18K-163-2390319-00

PATIENT
  Age: 67 Year
  Sex: Female

DRUGS (6)
  1. HUMIRA [Suspect]
     Active Substance: ADALIMUMAB
     Indication: CROHN^S DISEASE
     Dosage: DAY 1
     Route: 058
     Dates: start: 20180525, end: 20180525
  2. HUMIRA [Suspect]
     Active Substance: ADALIMUMAB
     Dosage: DAY 15
     Route: 058
     Dates: start: 20180609, end: 20180609
  3. HUMIRA [Suspect]
     Active Substance: ADALIMUMAB
     Indication: CROHN^S DISEASE
     Route: 058
     Dates: start: 201904, end: 201905
  4. HUMIRA [Suspect]
     Active Substance: ADALIMUMAB
     Dosage: DAY 29 AND MAINTENANCE DOSE
     Route: 058
     Dates: start: 20180625
  5. HUMIRA [Suspect]
     Active Substance: ADALIMUMAB
     Route: 058
  6. HUMIRA [Suspect]
     Active Substance: ADALIMUMAB
     Dosage: LATE DOSE
     Route: 058
     Dates: start: 201905

REACTIONS (51)
  - Constipation [Not Recovered/Not Resolved]
  - Balance disorder [Unknown]
  - Anxiety [Recovered/Resolved]
  - Fall [Unknown]
  - Back pain [Unknown]
  - Blood pressure increased [Recovered/Resolved]
  - Loss of personal independence in daily activities [Recovering/Resolving]
  - Fatigue [Not Recovered/Not Resolved]
  - Nausea [Not Recovered/Not Resolved]
  - Abdominal operation [Unknown]
  - Dyspepsia [Recovering/Resolving]
  - Post-traumatic stress disorder [Unknown]
  - Gastroenteritis viral [Unknown]
  - Rectal haemorrhage [Unknown]
  - Gastrointestinal pain [Not Recovered/Not Resolved]
  - Fear [Not Recovered/Not Resolved]
  - Contusion [Recovering/Resolving]
  - Foot fracture [Unknown]
  - Cerebrovascular accident [Unknown]
  - Decreased appetite [Recovering/Resolving]
  - Concussion [Unknown]
  - Vertigo [Unknown]
  - Diarrhoea [Not Recovered/Not Resolved]
  - Headache [Recovered/Resolved]
  - Onychomycosis [Recovered/Resolved]
  - Weight decreased [Recovering/Resolving]
  - Abdominal injury [Not Recovered/Not Resolved]
  - Skin laceration [Unknown]
  - Hyperhidrosis [Not Recovered/Not Resolved]
  - Depressed mood [Recovering/Resolving]
  - Abdominal pain [Not Recovered/Not Resolved]
  - Influenza [Recovered/Resolved]
  - Nasopharyngitis [Recovered/Resolved]
  - Blindness [Unknown]
  - Neck injury [Not Recovered/Not Resolved]
  - Contusion [Unknown]
  - Insomnia [Recovering/Resolving]
  - Anxiety [Unknown]
  - Abdominal distension [Not Recovered/Not Resolved]
  - Abdominal pain upper [Not Recovered/Not Resolved]
  - Crohn^s disease [Unknown]
  - Sinusitis [Unknown]
  - Cataract [Recovering/Resolving]
  - Malaise [Not Recovered/Not Resolved]
  - Sinusitis noninfective [Unknown]
  - Post-traumatic neck syndrome [Unknown]
  - Feeling abnormal [Unknown]
  - Skin papilloma [Recovered/Resolved]
  - Road traffic accident [Recovering/Resolving]
  - Rectal haemorrhage [Recovered/Resolved]
  - Pain [Unknown]

NARRATIVE: CASE EVENT DATE: 2018
